FAERS Safety Report 22622399 (Version 2)
Quarter: 2023Q2

REPORT INFORMATION
  Report Type: Spontaneous
  Country: JP (occurrence: JP)
  Receive Date: 20230620
  Receipt Date: 20230626
  Transmission Date: 20230722
  Serious: No
  Sender: FDA-Public Use
  Company Number: JP-GSKJP-JP2022JPN131554

PATIENT

DRUGS (3)
  1. BOTULINUM TOXIN TYPE A [Suspect]
     Active Substance: BOTULINUM TOXIN TYPE A
     Indication: Crocodile tears syndrome
     Dosage: UNK, THE 6TH DOSE (1.5 U TO LACRIMAL GLAND, 0.8 U TO ORBICULARIS OCULI MUSCLE OF OUTER UPPER EYELID
     Route: 065
  2. BOTULINUM TOXIN TYPE A [Suspect]
     Active Substance: BOTULINUM TOXIN TYPE A
     Indication: Crocodile tears syndrome
     Dosage: 6 IU, ONCE IN 6 MONTHS
     Route: 065
  3. BENOXIL OPHTHALMIC SOLUTION [Concomitant]
     Indication: Anaesthesia procedure
     Dosage: UNK?OPHTHALMIC SOLUTION

REACTIONS (5)
  - Eyelid ptosis [Recovered/Resolved]
  - Off label use [Unknown]
  - Product use in unapproved indication [Unknown]
  - Therapeutic response unexpected [Unknown]
  - Product use issue [Unknown]

NARRATIVE: CASE EVENT DATE: 20170714
